FAERS Safety Report 15052850 (Version 3)
Quarter: 2025Q3

REPORT INFORMATION
  Report Type: Spontaneous
  Country: CN (occurrence: CN)
  Receive Date: 20180622
  Receipt Date: 20250826
  Transmission Date: 20251020
  Serious: Yes (Hospitalization, Other)
  Sender: PFIZER
  Company Number: CN-MLMSERVICE-20180612-1224087-1

PATIENT
  Age: 47 Year
  Sex: Female

DRUGS (12)
  1. METHYLPREDNISOLONE [Suspect]
     Active Substance: METHYLPREDNISOLONE
     Indication: Systemic lupus erythematosus
     Dosage: 500 MG, 1X/DAY, (HIGH-DOSE, FOR 3 DAYS)
     Dates: start: 201503, end: 2015
  2. METHYLPREDNISOLONE [Suspect]
     Active Substance: METHYLPREDNISOLONE
     Indication: Aplasia pure red cell
  3. PREDNISONE [Suspect]
     Active Substance: PREDNISONE
     Indication: Aplasia pure red cell
     Dates: start: 200912
  4. PREDNISONE [Suspect]
     Active Substance: PREDNISONE
     Indication: Systemic lupus erythematosus
     Dosage: TAPERED TO 10-15 MG/DAY
  5. PREDNISONE [Suspect]
     Active Substance: PREDNISONE
     Dosage: 1 MG/KG, 1X/DAY
     Route: 048
     Dates: start: 201503
  6. PREDNISONE [Suspect]
     Active Substance: PREDNISONE
     Dosage: 0.5 MG/KG, 1X/DAY (GRADUALLY TAPERED TO 0.5 MG/KG/DAY)
     Route: 048
  7. CYCLOPHOSPHAMIDE [Suspect]
     Active Substance: CYCLOPHOSPHAMIDE
     Indication: Systemic lupus erythematosus
     Dates: start: 200912, end: 2014
  8. AZATHIOPRINE [Suspect]
     Active Substance: AZATHIOPRINE
     Indication: Systemic lupus erythematosus
     Dates: start: 200912, end: 2014
  9. CYCLOSPORINE [Suspect]
     Active Substance: CYCLOSPORINE
     Indication: Aplasia pure red cell
     Dates: start: 200912, end: 2014
  10. CYCLOSPORINE [Suspect]
     Active Substance: CYCLOSPORINE
     Indication: Systemic lupus erythematosus
     Dosage: 4 MG/KG, 1X/DAY
     Dates: start: 201503
  11. HYDROXYCHLOROQUINE [Concomitant]
     Active Substance: HYDROXYCHLOROQUINE
     Indication: Systemic lupus erythematosus
     Dates: start: 200912, end: 2014
  12. HYDROXYCHLOROQUINE [Concomitant]
     Active Substance: HYDROXYCHLOROQUINE
     Dates: start: 201503

REACTIONS (2)
  - Listeriosis [Recovering/Resolving]
  - Encephalitis [Recovering/Resolving]

NARRATIVE: CASE EVENT DATE: 20150101
